FAERS Safety Report 18089811 (Version 2)
Quarter: 2020Q3

REPORT INFORMATION
  Report Type: Spontaneous
  Country: IT (occurrence: IT)
  Receive Date: 20200729
  Receipt Date: 20200806
  Transmission Date: 20201103
  Serious: Yes (Hospitalization, Other)
  Sender: FDA-Public Use
  Company Number: IT-LUNDBECK-DKLU3019129

PATIENT
  Age: 78 Year
  Sex: Female

DRUGS (3)
  1. FRISIUM [Suspect]
     Active Substance: CLOBAZAM
     Indication: DRUG ABUSE
     Dosage: OVERDOSE: 40 DF TOTAL
     Route: 065
     Dates: start: 20200527, end: 20200527
  2. LORMETAZEPAM [Suspect]
     Active Substance: LORMETAZEPAM
     Indication: DRUG ABUSE
     Dosage: OVERDOSE: 10ML TOTAL
     Route: 048
     Dates: start: 20200527, end: 20200527
  3. STILNOX [Suspect]
     Active Substance: ZOLPIDEM TARTRATE
     Indication: DRUG ABUSE
     Dosage: OVERDOSE: 30 DF TOTAL
     Route: 048
     Dates: start: 20200527, end: 20200527

REACTIONS (3)
  - Intentional overdose [Unknown]
  - Sopor [Recovering/Resolving]
  - Drug abuse [Unknown]

NARRATIVE: CASE EVENT DATE: 20200527
